FAERS Safety Report 4626747-X (Version None)
Quarter: 2005Q2

REPORT INFORMATION
  Report Type: 
  Country: None (occurrence: None)
  Receive Date: 20050405
  Receipt Date: 20040803
  Transmission Date: 20051028
  Serious: Yes (Hospitalization)
  Sender: FDA-Public Use
  Company Number: 200412926FR

PATIENT
  Age: 62 Year
  Sex: Female
  Weight: 81 kg

DRUGS (8)
  1. ENOXAPARIN SODIUM [Suspect]
     Indication: CORONARY ANGIOPLASTY
     Route: 042
     Dates: start: 20040729, end: 20040729
  2. PLAVIX [Concomitant]
     Route: 048
     Dates: start: 20030101
  3. KARDEGIC [Concomitant]
     Route: 048
     Dates: start: 20031102
  4. SECTRAL [Concomitant]
     Indication: HYPERTENSION
     Route: 048
     Dates: start: 20031102
  5. TAHOR [Concomitant]
     Route: 048
     Dates: start: 20031102
  6. AMLOR [Concomitant]
     Indication: HYPERTENSION
     Route: 048
  7. FORTZAAR [Concomitant]
     Indication: HYPERTENSION
  8. DIFFU K [Concomitant]
     Indication: HYPOKALAEMIA
     Route: 048
     Dates: start: 20040728

REACTIONS (3)
  - ARTERIOVENOUS FISTULA [None]
  - CATHETER SITE RELATED REACTION [None]
  - HAEMATOMA [None]
